FAERS Safety Report 7331823-7 (Version None)
Quarter: 2011Q1

REPORT INFORMATION
  Report Type: 
  Country: None (occurrence: None)
  Receive Date: 20110224
  Receipt Date: 20110216
  Transmission Date: 20110831
  Serious: Yes (Hospitalization)
  Sender: FDA-Public Use
  Company Number: 2009SP033944

PATIENT
  Age: 60 Year
  Sex: Male

DRUGS (8)
  1. EFFEXOR [Suspect]
     Indication: MAJOR DEPRESSION
     Dosage: 75 MG, QD;
  2. IMOVANE [Concomitant]
  3. CIPROFLOXACIN [Suspect]
     Indication: BALANITIS
     Dosage: 500 MG, BID;
     Dates: start: 20090219, end: 20090304
  4. DUPHALAC [Concomitant]
  5. VIVAL [Concomitant]
  6. REMERON [Suspect]
     Indication: MAJOR DEPRESSION
     Dosage: 30 MG QD;
  7. ZYPREXA [Suspect]
     Indication: MAJOR DEPRESSION
     Dosage: 5 MG, QD;
  8. SELEXID (PIVMECILLINAM) [Concomitant]

REACTIONS (4)
  - DRUG INTERACTION [None]
  - BLOOD CREATINE PHOSPHOKINASE INCREASED [None]
  - SEROTONIN SYNDROME [None]
  - CONVULSION [None]
